FAERS Safety Report 11960689 (Version 2)
Quarter: 2016Q1

REPORT INFORMATION
  Report Type: Report from Study
  Country: US (occurrence: US)
  Receive Date: 20160126
  Receipt Date: 20160202
  Transmission Date: 20160526
  Serious: No
  Sender: FDA-Public Use
  Company Number: US-ABBVIE-15K-163-1359526-00

PATIENT
  Age: 54 Year
  Sex: Female

DRUGS (3)
  1. HUMIRA [Suspect]
     Active Substance: ADALIMUMAB
     Route: 065
  2. HUMIRA [Suspect]
     Active Substance: ADALIMUMAB
     Dosage: TWO SHOTS
     Route: 065
     Dates: start: 20150309, end: 20150309
  3. HUMIRA [Suspect]
     Active Substance: ADALIMUMAB
     Indication: CROHN^S DISEASE
     Dosage: FOUR SHOTS
     Route: 065
     Dates: start: 20150223, end: 20150223

REACTIONS (1)
  - Dyspepsia [Recovering/Resolving]

NARRATIVE: CASE EVENT DATE: 20150225
